FAERS Safety Report 21097823 (Version 3)
Quarter: 2023Q1

REPORT INFORMATION
  Report Type: Spontaneous
  Country: CA (occurrence: CA)
  Receive Date: 20220719
  Receipt Date: 20230316
  Transmission Date: 20230418
  Serious: Yes (Other)
  Sender: FDA-Public Use
  Company Number: CA-SAMSUNG BIOEPIS-SB-2022-17322

PATIENT
  Age: 30 Year
  Sex: Female
  Weight: 64 kg

DRUGS (2)
  1. INFLIXIMAB [Suspect]
     Active Substance: INFLIXIMAB
     Indication: Crohn^s disease
     Route: 042
  2. INFLIXIMAB [Suspect]
     Active Substance: INFLIXIMAB
     Route: 042

REACTIONS (9)
  - Dental caries [Not Recovered/Not Resolved]
  - Abscess [Not Recovered/Not Resolved]
  - Asthenia [Recovered/Resolved]
  - Nausea [Not Recovered/Not Resolved]
  - Tooth abscess [Not Recovered/Not Resolved]
  - Toothache [Not Recovered/Not Resolved]
  - Diarrhoea [Not Recovered/Not Resolved]
  - Therapeutic product effect incomplete [Not Recovered/Not Resolved]
  - Inappropriate schedule of product administration [Not Recovered/Not Resolved]
